FAERS Safety Report 17273791 (Version 1)
Quarter: 2020Q1

REPORT INFORMATION
  Report Type: Spontaneous
  Country: US (occurrence: US)
  Receive Date: 20200115
  Receipt Date: 20200115
  Transmission Date: 20200409
  Serious: No
  Sender: FDA-Public Use
  Company Number: US-PERRIGO-19US013470

PATIENT
  Age: 56 Year
  Sex: Male

DRUGS (1)
  1. IBUPROFEN. [Suspect]
     Active Substance: IBUPROFEN
     Indication: PAIN
     Dosage: 1000 MG, SINGLE
     Route: 048
     Dates: start: 20191104, end: 20191104

REACTIONS (4)
  - Heart rate decreased [Unknown]
  - Dizziness [Unknown]
  - Incorrect dose administered [Unknown]
  - Malaise [Unknown]

NARRATIVE: CASE EVENT DATE: 20191104
